FAERS Safety Report 9259007 (Version 2)
Quarter: 2014Q1

REPORT INFORMATION
  Report Type: Report from Study
  Country: US (occurrence: US)
  Receive Date: 20130426
  Receipt Date: 20140108
  Transmission Date: 20141002
  Serious: Yes (Death, Hospitalization, Other)
  Sender: FDA-Public Use
  Company Number: US-ELI_LILLY_AND_COMPANY-US201207003735

PATIENT
  Sex: Female
  Weight: 50.79 kg

DRUGS (2)
  1. TERIPARATIDE [Suspect]
     Indication: OSTEOPOROSIS
     Dosage: 20 UG, QD
     Route: 065
     Dates: start: 201201
  2. TERIPARATIDE [Suspect]
     Dosage: 20 UG, QD
     Route: 065

REACTIONS (3)
  - Malignant peritoneal neoplasm [Fatal]
  - Intestinal obstruction [Unknown]
  - Arthritis [Unknown]
